FAERS Safety Report 9466944 (Version 4)
Quarter: 2014Q2

REPORT INFORMATION
  Report Type: Report from Study
  Country: NL (occurrence: NL)
  Receive Date: 20130820
  Receipt Date: 20140414
  Transmission Date: 20141212
  Serious: Yes (Hospitalization)
  Sender: FDA-Public Use
  Company Number: NL-009507513-1308BEL003783

PATIENT
  Age: 53 Year
  Sex: Male
  Weight: 71.4 kg

DRUGS (6)
  1. TEMOZOLOMIDE [Suspect]
     Indication: GLIOBLASTOMA MULTIFORME
     Dosage: 75 MG/M2, QD DURING RT (ACTUAL DOSE GIVEN: 135 MG)
     Route: 048
     Dates: start: 20121030, end: 20121115
  2. TEMOZOLOMIDE [Suspect]
     Dosage: 75 MG/M2, QD DURING RT (ACTUAL DOSE GIVEN: 135 MG)
     Route: 048
     Dates: start: 20121119, end: 20121119
  3. LEVETIRACETAM [Concomitant]
     Indication: CONVULSION
     Dosage: 1 MG,1 X DD
     Route: 048
  4. VALPROATE SODIUM [Concomitant]
     Indication: CONVULSION
     Dosage: 750 MG, 2 X DD
     Route: 048
  5. LOPRAZOLAM [Concomitant]
     Indication: INSOMNIA
     Dosage: 1 MG, 1X DD
     Route: 048
  6. SULFAMETHOXAZOLE (+) TRIMETHOPRIM [Concomitant]
     Indication: PREMEDICATION
     Dosage: 960 MG, TIW
     Route: 048
     Dates: start: 20121031, end: 20121121

REACTIONS (1)
  - Pneumonitis [Recovered/Resolved]
